FAERS Safety Report 25876788 (Version 1)
Quarter: 2025Q4

REPORT INFORMATION
  Report Type: Spontaneous
  Country: US (occurrence: US)
  Receive Date: 20251003
  Receipt Date: 20251003
  Transmission Date: 20260117
  Serious: No
  Sender: SANOFI AVENTIS
  Company Number: US-COSETTE-CP2025US000952

PATIENT

DRUGS (4)
  1. AMBIEN [Suspect]
     Active Substance: ZOLPIDEM TARTRATE
     Indication: Insomnia
     Route: 065
  2. AMBIEN CR [Suspect]
     Active Substance: ZOLPIDEM TARTRATE
     Indication: Insomnia
     Route: 065
  3. DIPHENHYDRAMINE [Concomitant]
     Active Substance: DIPHENHYDRAMINE
     Indication: Insomnia
     Dosage: 2500 MG N/A DOSE EVERY N/A N/A
     Route: 065
  4. ANTIMONY POTASSIUM TARTRATE;PAPAVER SOMNIFERUM TINCTURE;TERPIN [Concomitant]
     Indication: Insomnia
     Route: 065

REACTIONS (1)
  - Drug ineffective [Unknown]
